FAERS Safety Report 19533037 (Version 2)
Quarter: 2021Q3

REPORT INFORMATION
  Report Type: Report from Study
  Country: US (occurrence: US)
  Receive Date: 20210713
  Receipt Date: 20210823
  Transmission Date: 20211014
  Serious: Yes (Hospitalization)
  Sender: FDA-Public Use
  Company Number: US-TAKEDA-2021TUS042759

PATIENT
  Sex: Male

DRUGS (2)
  1. BRIGATINIB [Suspect]
     Active Substance: BRIGATINIB
     Dosage: 90 MILLIGRAM, QD
     Route: 048
  2. BRIGATINIB [Suspect]
     Active Substance: BRIGATINIB
     Indication: LUNG NEOPLASM
     Dosage: 90 MILLIGRAM, BID
     Route: 065
     Dates: start: 2021

REACTIONS (3)
  - Diarrhoea [Recovered/Resolved]
  - Blood glucose increased [Unknown]
  - Nausea [Recovered/Resolved]
